FAERS Safety Report 6234640-4 (Version None)
Quarter: 2009Q2

REPORT INFORMATION
  Report Type: 
  Country: None (occurrence: None)
  Receive Date: 20090615
  Receipt Date: 20090410
  Transmission Date: 20091009
  Serious: No
  Sender: FDA-Public Use
  Company Number: DSA_33498_2009

PATIENT
  Sex: Female
  Weight: 62.1428 kg

DRUGS (9)
  1. XENAZINE [Suspect]
     Indication: TORTICOLLIS
     Dosage: 12.5 MG QD ORAL, 12.5 MG BID
     Route: 048
     Dates: start: 20090323, end: 20090330
  2. XENAZINE [Suspect]
     Indication: TORTICOLLIS
     Dosage: 12.5 MG QD ORAL, 12.5 MG BID
     Route: 048
     Dates: start: 20090331, end: 20090406
  3. CYMBALTA [Concomitant]
  4. HYZAAR [Concomitant]
  5. FOSAMAX [Concomitant]
  6. REQUIP [Concomitant]
  7. LYSINE [Concomitant]
  8. CALTRATE + D [Concomitant]
  9. ATIVAN [Concomitant]

REACTIONS (5)
  - CONFUSIONAL STATE [None]
  - DISORIENTATION [None]
  - DISTURBANCE IN ATTENTION [None]
  - INSOMNIA [None]
  - RESTLESSNESS [None]
